FAERS Safety Report 9193857 (Version 2)
Quarter: 2013Q2

REPORT INFORMATION
  Report Type: Spontaneous
  Country: US (occurrence: None)
  Receive Date: 20120703
  Receipt Date: 20130107
  Transmission Date: 20140414
  Serious: No
  Sender: FDA-Public Use
  Company Number: PHEH2012US005860

PATIENT
  Sex: Male

DRUGS (2)
  1. GILENYA [Suspect]
     Route: 048
  2. MULTIVITAMINS (ASCORBIC ACID, (ERGOCALIFEROL, PANTHENOLFOLIC AICD, NICOTAMIDE,PANTHENOL, RETINOL, RIBOFLAVIN, THIAMINE HYDROCHLORIDE) CAPSULE [Concomitant]

REACTIONS (4)
  - Hypoaesthesia [None]
  - Paraesthesia [None]
  - Exostosis [None]
  - Fatigue [None]
